FAERS Safety Report 24350091 (Version 1)
Quarter: 2024Q3

REPORT INFORMATION
  Report Type: Spontaneous
  Country: US (occurrence: US)
  Receive Date: 20240923
  Receipt Date: 20240923
  Transmission Date: 20241017
  Serious: No
  Sender: MELINTA THERAPEUTICS
  Company Number: US-MELINTA THERAPEUTICS, LLC-US-MLNT-24-00281

PATIENT
  Age: 70 Year
  Sex: Female

DRUGS (3)
  1. ORBACTIV [Suspect]
     Active Substance: ORITAVANCIN
     Indication: Product used for unknown indication
     Dosage: UNK
     Route: 041
  2. ORBACTIV [Suspect]
     Active Substance: ORITAVANCIN
     Dosage: UNK
     Route: 041
  3. ORBACTIV [Suspect]
     Active Substance: ORITAVANCIN
     Dosage: UNK
     Route: 041

REACTIONS (2)
  - Fatigue [Unknown]
  - Multiple use of single-use product [Unknown]
